FAERS Safety Report 10902449 (Version 3)
Quarter: 2015Q3

REPORT INFORMATION
  Report Type: Spontaneous
  Country: US (occurrence: US)
  Receive Date: 20150310
  Receipt Date: 20150824
  Transmission Date: 20151125
  Serious: Yes (Death, Hospitalization, Other)
  Sender: FDA-Public Use
  Company Number: US-009507513-1503USA004723

PATIENT
  Sex: Female
  Weight: 89.8 kg

DRUGS (4)
  1. JANUMET [Suspect]
     Active Substance: METFORMIN HYDROCHLORIDE\SITAGLIPTIN PHOSPHATE
     Dosage: 500/50MG BID
     Route: 048
     Dates: start: 20100624, end: 201301
  2. VITAMIN D [Concomitant]
     Active Substance: CHOLECALCIFEROL
     Indication: OSTEOPOROSIS
     Dosage: UNK
     Dates: start: 1987, end: 201303
  3. JANUMET [Suspect]
     Active Substance: METFORMIN HYDROCHLORIDE\SITAGLIPTIN PHOSPHATE
     Indication: TYPE 2 DIABETES MELLITUS
     Dosage: 500/50MG DAILY
     Route: 048
     Dates: end: 201303
  4. VITAMINS (UNSPECIFIED) [Concomitant]
     Active Substance: VITAMINS
     Dosage: UNK
     Dates: start: 1987, end: 201303

REACTIONS (13)
  - Small intestinal obstruction [Unknown]
  - Nephrolithiasis [Unknown]
  - Hyperglycaemia [Unknown]
  - Large intestinal polypectomy [Unknown]
  - Pancreatic carcinoma metastatic [Unknown]
  - Death [Fatal]
  - Acute kidney injury [Unknown]
  - Tachycardia [Unknown]
  - Mesenteric neoplasm [Unknown]
  - Arteriosclerosis [Unknown]
  - Intestinal polyp [Unknown]
  - Metastases to liver [Unknown]
  - Mental status changes [Unknown]

NARRATIVE: CASE EVENT DATE: 2011
